FAERS Safety Report 22860946 (Version 4)
Quarter: 2023Q4

REPORT INFORMATION
  Report Type: Report from Study
  Country: CA (occurrence: CA)
  Receive Date: 20230824
  Receipt Date: 20231116
  Transmission Date: 20240109
  Serious: Yes (Death, Other)
  Sender: FDA-Public Use
  Company Number: CA-ABBVIE-5378993

PATIENT
  Age: 72 Year
  Sex: Male

DRUGS (1)
  1. LUPRON [Suspect]
     Active Substance: LEUPROLIDE ACETATE
     Indication: Prostate cancer
     Dosage: FORM OF ADMINISTRATION: POWDER AND SOLVENT FOR SUSPENSION FOR INJECTION IN PRE-FILLED SYRINGE
     Route: 030
     Dates: start: 20221201

REACTIONS (6)
  - Death [Fatal]
  - Metastases to bone [Not Recovered/Not Resolved]
  - Metastases to central nervous system [Not Recovered/Not Resolved]
  - Metastases to liver [Not Recovered/Not Resolved]
  - Bladder catheterisation [Unknown]
  - Pain [Unknown]

NARRATIVE: CASE EVENT DATE: 20230815
